FAERS Safety Report 14475139 (Version 1)
Quarter: 2018Q1

REPORT INFORMATION
  Report Type: Spontaneous
  Country: US (occurrence: US)
  Receive Date: 20180131
  Receipt Date: 20180131
  Transmission Date: 20180509
  Serious: Yes (Other)
  Sender: FDA-Public Use
  Company Number: None

PATIENT
  Sex: Female
  Weight: 62.1 kg

DRUGS (11)
  1. LEVOTHYROXIN [Concomitant]
     Active Substance: LEVOTHYROXINE
  2. VITAMIN C [Concomitant]
     Active Substance: ASCORBIC ACID
  3. VIT B-12 [Concomitant]
  4. CALCIUM [Concomitant]
     Active Substance: CALCIUM
  5. TERBINAFINE 250 MG [Suspect]
     Active Substance: TERBINAFINE
     Indication: ONYCHOMYCOSIS
     Dosage: ?          QUANTITY:30 TABLET(S);?
     Route: 048
     Dates: start: 20171116, end: 20180111
  6. MEGA RED OMEGA 3 [Concomitant]
  7. VIT D-3 [Concomitant]
  8. GRAPESEED/RESVERATROL [Concomitant]
  9. ZOCOR [Concomitant]
     Active Substance: SIMVASTATIN
  10. MULTI-VIT FOR WOMEN [Concomitant]
  11. PROBIOTIC [Concomitant]
     Active Substance: PROBIOTICS NOS

REACTIONS (3)
  - Ageusia [None]
  - Dysgeusia [None]
  - Therapy cessation [None]

NARRATIVE: CASE EVENT DATE: 20180111
